FAERS Safety Report 25236094 (Version 3)
Quarter: 2025Q2

REPORT INFORMATION
  Report Type: Spontaneous
  Country: US (occurrence: US)
  Receive Date: 20250424
  Receipt Date: 20250630
  Transmission Date: 20250716
  Serious: Yes (Death, Hospitalization)
  Sender: ELI LILLY AND COMPANY
  Company Number: US-ELI_LILLY_AND_COMPANY-US202504014566

PATIENT
  Age: 83 Year
  Sex: Female
  Weight: 50 kg

DRUGS (1)
  1. KISUNLA [Suspect]
     Active Substance: DONANEMAB-AZBT
     Indication: Dementia Alzheimer^s type
     Dosage: UNK, MONTHLY (1/M)
     Route: 042
     Dates: start: 20250218

REACTIONS (2)
  - Death [Fatal]
  - Cerebrovascular accident [Not Recovered/Not Resolved]

NARRATIVE: CASE EVENT DATE: 20250408
